FAERS Safety Report 10911785 (Version 2)
Quarter: 2015Q3

REPORT INFORMATION
  Report Type: Report from Study
  Country: US (occurrence: US)
  Receive Date: 20150313
  Receipt Date: 20150922
  Transmission Date: 20151125
  Serious: No
  Sender: FDA-Public Use
  Company Number: US-AMGEN-USASL2015022793

PATIENT
  Age: 62 Year
  Sex: Female

DRUGS (1)
  1. ENBREL [Suspect]
     Active Substance: ETANERCEPT
     Indication: RHEUMATOID ARTHRITIS
     Dosage: 50 MG, QWK
     Route: 058
     Dates: start: 20150227, end: 201507

REACTIONS (6)
  - Oropharyngeal pain [Unknown]
  - Nasopharyngitis [Unknown]
  - Pyrexia [Unknown]
  - Injection site swelling [Unknown]
  - Injection site reaction [Unknown]
  - Injection site erythema [Unknown]

NARRATIVE: CASE EVENT DATE: 20150302
